FAERS Safety Report 15225651 (Version 4)
Quarter: 2018Q4

REPORT INFORMATION
  Report Type: Spontaneous
  Country: US (occurrence: US)
  Receive Date: 20180801
  Receipt Date: 20181227
  Transmission Date: 20190204
  Serious: No
  Sender: FDA-Public Use
  Company Number: US-BRISTOL-MYERS SQUIBB COMPANY-BMS-2018-071428

PATIENT
  Sex: Female

DRUGS (1)
  1. ORENCIA [Suspect]
     Active Substance: ABATACEPT
     Indication: RHEUMATOID ARTHRITIS
     Dosage: 125 MG, QWK
     Route: 058
     Dates: start: 201807

REACTIONS (8)
  - Nausea [Unknown]
  - Constipation [Unknown]
  - Drug ineffective [Unknown]
  - Alopecia [Unknown]
  - Cough [Unknown]
  - Sinusitis [Unknown]
  - Cystitis [Unknown]
  - Functional gastrointestinal disorder [Unknown]
